FAERS Safety Report 6202400-6 (Version None)
Quarter: 2009Q2

REPORT INFORMATION
  Report Type: 
  Country: None (occurrence: None)
  Receive Date: 20090526
  Receipt Date: 20090515
  Transmission Date: 20091009
  Serious: Yes (Life-Threatening, Hospitalization, Other)
  Sender: FDA-Public Use
  Company Number: AT-ELI_LILLY_AND_COMPANY-AT200905003372

PATIENT
  Age: 47 Year
  Sex: Male

DRUGS (3)
  1. ZYPREXA [Suspect]
     Indication: PSYCHOTIC DISORDER
     Dosage: UNK UNK, DAILY (1/D)
  2. ZYPREXA [Suspect]
     Dosage: 15 MG, DAILY (1/D)
  3. RISPERDAL [Concomitant]

REACTIONS (4)
  - AGRANULOCYTOSIS [None]
  - DEPRESSION [None]
  - RED BLOOD CELL COUNT DECREASED [None]
  - RESTLESSNESS [None]
